FAERS Safety Report 6507952-4 (Version None)
Quarter: 2009Q4

REPORT INFORMATION
  Report Type: 
  Country: None (occurrence: None)
  Receive Date: 20091221
  Receipt Date: 20091211
  Transmission Date: 20100525
  Serious: Yes (Congenital Anomaly)
  Sender: FDA-Public Use
  Company Number: B0615582A

PATIENT
  Sex: Male
  Weight: 1.78 kg

DRUGS (2)
  1. MALARONE [Suspect]
     Indication: MALARIA PROPHYLAXIS
     Route: 048
     Dates: start: 20070615, end: 20070707
  2. NARATRIPTAN [Suspect]
     Indication: MIGRAINE
     Route: 048
     Dates: start: 20040706

REACTIONS (2)
  - INTESTINAL ATRESIA [None]
  - MATERNAL DRUGS AFFECTING FOETUS [None]
